FAERS Safety Report 17109104 (Version 1)
Quarter: 2019Q4

REPORT INFORMATION
  Report Type: Spontaneous
  Country: US (occurrence: US)
  Receive Date: 20191204
  Receipt Date: 20191204
  Transmission Date: 20200122
  Serious: No
  Sender: FDA-Public Use
  Company Number: US-TEVA-2019-US-1145131

PATIENT

DRUGS (1)
  1. ERLOTINIB [Suspect]
     Active Substance: ERLOTINIB
     Dosage: 150 MG
     Dates: start: 201905

REACTIONS (2)
  - Product substitution issue [Unknown]
  - Alopecia [Unknown]

NARRATIVE: CASE EVENT DATE: 201905
